FAERS Safety Report 4989111-X (Version None)
Quarter: 2006Q2

REPORT INFORMATION
  Report Type: 
  Country: None (occurrence: None)
  Receive Date: 20060425
  Receipt Date: 20050906
  Transmission Date: 20061013
  Serious: Yes (Other)
  Sender: FDA-Public Use
  Company Number: 8011172

PATIENT
  Age: 49 Year
  Sex: Male
  Weight: 100 kg

DRUGS (5)
  1. KEPPRA [Suspect]
     Indication: CONVULSION
     Dosage: 1500 MG 2/D PO
     Route: 048
     Dates: start: 20030101, end: 20050414
  2. KEPPRA [Suspect]
     Indication: CONVULSION
     Dosage: 2250 MG 2/D PO
     Route: 048
     Dates: start: 20050415, end: 20050808
  3. KEPPRA [Suspect]
     Indication: CONVULSION
     Dosage: 3750 MG PO
     Route: 048
     Dates: start: 20050809, end: 20050817
  4. KEPPRA [Suspect]
     Indication: CONVULSION
     Dosage: 1500 MG 2/D PO
     Route: 048
     Dates: start: 20050818
  5. TEGRETOL [Concomitant]

REACTIONS (1)
  - ACCIDENTAL OVERDOSE [None]
